FAERS Safety Report 16922296 (Version 1)
Quarter: 2019Q4

REPORT INFORMATION
  Report Type: Spontaneous
  Country: FR (occurrence: FR)
  Receive Date: 20191015
  Receipt Date: 20191015
  Transmission Date: 20200122
  Serious: Yes (Death, Life-Threatening, Other)
  Sender: FDA-Public Use
  Company Number: FR-AMGEN-FRASP2019168555

PATIENT

DRUGS (3)
  1. 5-FU [FLUOROURACIL] [Suspect]
     Active Substance: FLUOROURACIL
     Indication: ANAL CANCER
     Dosage: 400 MILLIGRAM/SQ. METER, CYCLICAL
     Route: 065
  2. PANITUMUMAB [Suspect]
     Active Substance: PANITUMUMAB
     Indication: ANAL CANCER
     Dosage: 3 MILLIGRAM/KILOGRAM, CYCLICAL
     Route: 065
  3. MITOMYCIN C [Suspect]
     Active Substance: MITOMYCIN
     Indication: ANAL CANCER
     Dosage: 10 MILLIGRAM/SQ. METER, CYCLICAL
     Route: 065

REACTIONS (8)
  - Intestinal ischaemia [Fatal]
  - Asthenia [Unknown]
  - Off label use [Unknown]
  - Neutropenia [Unknown]
  - Radiation skin injury [Unknown]
  - Lymphopenia [Unknown]
  - Gastrointestinal toxicity [Unknown]
  - Anal cancer recurrent [Unknown]
